FAERS Safety Report 4809812-3 (Version None)
Quarter: 2005Q4

REPORT INFORMATION
  Report Type: 
  Country: None (occurrence: None)
  Receive Date: 20051024
  Receipt Date: 20051024
  Transmission Date: 20060501
  Serious: Yes (Hospitalization, Other)
  Sender: FDA-Public Use
  Company Number: None

PATIENT
  Sex: Female
  Weight: 96.5 kg

DRUGS (2)
  1. CYTARABINE [Suspect]
     Indication: ACUTE MYELOID LEUKAEMIA
     Dosage: SEE IMAGE
     Route: 042
     Dates: start: 20050926, end: 20051004
  2. GM-CSF [Suspect]
     Dosage: SEE IMAGE
     Route: 058
     Dates: start: 20050926, end: 20051015

REACTIONS (2)
  - BODY TEMPERATURE INCREASED [None]
  - FATIGUE [None]
